FAERS Safety Report 7608263-6 (Version None)
Quarter: 2011Q3

REPORT INFORMATION
  Report Type: 
  Country: None (occurrence: None)
  Receive Date: 20110706
  Receipt Date: 20110622
  Transmission Date: 20111222
  Serious: Yes (Other)
  Sender: FDA-Public Use
  Company Number: AUR-APL-2011-03597

PATIENT
  Age: 61 Year
  Sex: Male
  Weight: 81 kg

DRUGS (7)
  1. AQUEOUS CREAM (CETOSTEARYL ALCOHOL) [Concomitant]
  2. ACETAMINOPHEN [Concomitant]
  3. SIMVASTATIN [Concomitant]
  4. AMLODIPINE [Suspect]
     Indication: PRODUCT USED FOR UNKNOWN INDICATION
     Dates: start: 20110326
  5. DIHYDROCODEINE BITARTRATE INJ [Concomitant]
  6. RAMIPRIL [Concomitant]
  7. BETAMETHASONE VALERATE [Concomitant]

REACTIONS (2)
  - ARTHRALGIA [None]
  - JOINT SWELLING [None]
